FAERS Safety Report 4361717-0 (Version None)
Quarter: 2004Q2

REPORT INFORMATION
  Report Type: 
  Country: None (occurrence: None)
  Receive Date: 20040517
  Receipt Date: 20040505
  Transmission Date: 20050107
  Serious: Yes (Other)
  Sender: FDA-Public Use
  Company Number: HQWYE727906MAY04

PATIENT

DRUGS (4)
  1. LEUCOVORIN CALCIUM [Suspect]
     Indication: RENAL CELL CARCINOMA STAGE UNSPECIFIED
     Dosage: 50 MG/M^2 WEEKLY WEEKS 1 TO 4, INTRAVENOUS
     Route: 042
  2. FLUOROURACIL [Suspect]
     Indication: RENAL CELL CARCINOMA STAGE UNSPECIFIED
     Dosage: 450 MG/M^2 WEEKLY WEEKS 1 TO 4, INFUSION
  3. INTERFERON ALFA (INTERFERON ALFA,) [Suspect]
     Indication: RENAL CELL CARCINOMA STAGE UNSPECIFIED
     Dosage: 3 MIU/M^2 ON DAYS 1,3, AND 5 OF WEEKS 1 TO 4, SUBCUTANEOUS
     Route: 058
  4. INTERLEUKIN-2 (INTERLEUKIN-2,) [Suspect]
     Indication: RENAL CELL CARCINOMA STAGE UNSPECIFIED
     Dosage: 2-5 MIU/M^2 DAYS 1,3 AND 5 OF WEEKS 1 TO 4, SUBCUTANEOUS
     Route: 058

REACTIONS (1)
  - IDIOPATHIC THROMBOCYTOPENIC PURPURA [None]
